FAERS Safety Report 6101301-1 (Version None)
Quarter: 2009Q1

REPORT INFORMATION
  Report Type: 
  Country: None (occurrence: None)
  Receive Date: 20090304
  Receipt Date: 20060822
  Transmission Date: 20090719
  Serious: No
  Sender: FDA-Public Use
  Company Number: US-ABBOTT-08P-163-0456763-00

PATIENT

DRUGS (2)
  1. VALPROATE SODIUM [Suspect]
     Indication: BIPOLAR II DISORDER
  2. BUPROPION HCL [Concomitant]
     Indication: BIPOLAR II DISORDER

REACTIONS (1)
  - DEPRESSION [None]
